FAERS Safety Report 24940946 (Version 1)
Quarter: 2025Q1

REPORT INFORMATION
  Report Type: Spontaneous
  Country: US (occurrence: US)
  Receive Date: 20250207
  Receipt Date: 20250207
  Transmission Date: 20250409
  Serious: No
  Sender: ROCHE
  Company Number: US-ROCHE-10000201509

PATIENT
  Age: 38 Year
  Sex: Male

DRUGS (8)
  1. RITUXIMAB [Suspect]
     Active Substance: RITUXIMAB
     Indication: Dermatomyositis
     Route: 040
  2. HYDROXYCHLOROQUINE [Suspect]
     Active Substance: HYDROXYCHLOROQUINE
     Indication: Dermatomyositis
     Dosage: FOR ONE MONTH
     Route: 065
  3. METHOTREXATE [Concomitant]
     Active Substance: METHOTREXATE
  4. MYCOPHENOLATE MOFETIL [Concomitant]
     Active Substance: MYCOPHENOLATE MOFETIL
  5. PREDNISONE [Concomitant]
     Active Substance: PREDNISONE
  6. TOFACITINIB [Concomitant]
     Active Substance: TOFACITINIB
  7. BARICITINIB [Concomitant]
     Active Substance: BARICITINIB
  8. ANIFROLUMAB [Concomitant]
     Active Substance: ANIFROLUMAB
     Route: 040

REACTIONS (2)
  - Drug ineffective [Unknown]
  - No adverse event [Unknown]
